FAERS Safety Report 9628882 (Version 1)
Quarter: 2013Q4

REPORT INFORMATION
  Report Type: Report from Study
  Country: US (occurrence: US)
  Receive Date: 20131017
  Receipt Date: 20131017
  Transmission Date: 20140711
  Serious: Yes (Hospitalization, Other)
  Sender: FDA-Public Use
  Company Number: US-JNJFOC-20131007033

PATIENT
  Age: 74 Year
  Sex: Female

DRUGS (1)
  1. NUCYNTA ER [Suspect]
     Indication: PAIN
     Route: 048

REACTIONS (5)
  - Suicide attempt [Recovered/Resolved]
  - Altered state of consciousness [Recovered/Resolved]
  - Miosis [Recovered/Resolved]
  - Confusional state [Recovered/Resolved]
  - Extra dose administered [Recovered/Resolved]
